FAERS Safety Report 5491083-9 (Version None)
Quarter: 2007Q4

REPORT INFORMATION
  Report Type: 
  Country: None (occurrence: None)
  Receive Date: 20071019
  Receipt Date: 20071008
  Transmission Date: 20080405
  Serious: Yes (Other)
  Sender: FDA-Public Use
  Company Number: US-PFIZER INC-2007054096

PATIENT
  Sex: Female
  Weight: 66.7 kg

DRUGS (11)
  1. LYRICA [Suspect]
     Indication: FIBROMYALGIA
     Dates: start: 20070601, end: 20070101
  2. NEURONTIN [Suspect]
     Indication: FIBROMYALGIA
  3. NEURONTIN [Suspect]
     Indication: PAIN
  4. XANAX [Concomitant]
     Indication: SLEEP DISORDER
  5. LAMICTAL [Concomitant]
  6. SEROQUEL [Concomitant]
  7. PREMARIN [Concomitant]
     Indication: HORMONE REPLACEMENT THERAPY
  8. PRILOSEC [Concomitant]
     Indication: GASTROOESOPHAGEAL REFLUX DISEASE
  9. LITHOBID [Concomitant]
  10. QUININE SULFATE [Concomitant]
     Indication: MUSCLE SPASMS
  11. LEVOXYL [Concomitant]
     Indication: THYROID DISORDER

REACTIONS (5)
  - ASTHENIA [None]
  - CONFUSIONAL STATE [None]
  - FIBROMYALGIA [None]
  - GAIT DISTURBANCE [None]
  - MEMORY IMPAIRMENT [None]
